FAERS Safety Report 5251573-0 (Version None)
Quarter: 2007Q1

REPORT INFORMATION
  Report Type: 
  Country: None (occurrence: None)
  Receive Date: 20070228
  Receipt Date: 20060926
  Transmission Date: 20070707
  Serious: No
  Sender: FDA-Public Use
  Company Number: US-GLAXOSMITHKLINE-A0620691A

PATIENT
  Age: 49 Year
  Sex: Male
  Weight: 102.3 kg

DRUGS (2)
  1. LAMICTAL [Suspect]
     Indication: BIPOLAR DISORDER
     Dosage: 300MG UNKNOWN
     Route: 048
     Dates: start: 20040601
  2. RISPERDAL [Concomitant]
     Indication: BIPOLAR DISORDER
     Dosage: 1MG UNKNOWN
     Route: 048
     Dates: start: 20040601

REACTIONS (2)
  - PLATELET COUNT DECREASED [None]
  - WHITE BLOOD CELL COUNT DECREASED [None]
